FAERS Safety Report 11467705 (Version 1)
Quarter: 2015Q3

REPORT INFORMATION
  Report Type: Report from Study
  Country: US (occurrence: US)
  Receive Date: 20150908
  Receipt Date: 20150908
  Transmission Date: 20151125
  Serious: Yes (Hospitalization, Other)
  Sender: FDA-Public Use
  Company Number: PHEH2015US017273

PATIENT
  Sex: Female
  Weight: 116.1 kg

DRUGS (2)
  1. GILENYA [Suspect]
     Active Substance: FINGOLIMOD HYDROCHLORIDE
     Indication: RELAPSING-REMITTING MULTIPLE SCLEROSIS
     Dosage: 0.5 MG, QD
     Route: 048
  2. VACCINE, INFLUENZA [Concomitant]
     Active Substance: INFLUENZA VIRUS VACCINE
     Indication: PRODUCT USED FOR UNKNOWN INDICATION
     Route: 065

REACTIONS (11)
  - Syncope [Unknown]
  - Dysaesthesia [Unknown]
  - Gait disturbance [Unknown]
  - Hemiparesis [Unknown]
  - Joint range of motion decreased [Unknown]
  - Throat tightness [Unknown]
  - Multiple sclerosis relapse [Unknown]
  - Pain in extremity [Unknown]
  - Myalgia [Unknown]
  - Headache [Unknown]
  - Arthralgia [Unknown]
